FAERS Safety Report 22836285 (Version 2)
Quarter: 2025Q3

REPORT INFORMATION
  Report Type: Spontaneous
  Country: CA (occurrence: CA)
  Receive Date: 20230818
  Receipt Date: 20250728
  Transmission Date: 20251021
  Serious: Yes (Other)
  Sender: SANOFI AVENTIS
  Company Number: CA-SA-SAC20230817000568

PATIENT
  Sex: Female

DRUGS (43)
  1. ZOPICLONE [Interacting]
     Active Substance: ZOPICLONE
     Indication: Insomnia
     Dosage: 1 DOSAGE FORM, QD (1 EVERY 1 DAYS)
     Route: 048
  2. RANITIDINE HYDROCHLORIDE [Interacting]
     Active Substance: RANITIDINE HYDROCHLORIDE
     Indication: Product used for unknown indication
     Dosage: 150 MILLIGRAM, BID (2 EVERY 1 DAYS) (1 EVERY 12 HOURS)
     Route: 065
  3. RANITIDINE HYDROCHLORIDE [Interacting]
     Active Substance: RANITIDINE HYDROCHLORIDE
     Route: 065
  4. RANITIDINE HYDROCHLORIDE [Interacting]
     Active Substance: RANITIDINE HYDROCHLORIDE
     Dosage: 2 DOSAGE FORM, QD (1 EVERY 1 DAYS)
     Route: 065
  5. RANITIDINE HYDROCHLORIDE [Interacting]
     Active Substance: RANITIDINE HYDROCHLORIDE
     Route: 065
  6. ACETAMINOPHEN [Interacting]
     Active Substance: ACETAMINOPHEN
     Indication: Pyrexia
  7. ACETAMINOPHEN [Interacting]
     Active Substance: ACETAMINOPHEN
     Indication: Pain
  8. CLOZAPINE [Interacting]
     Active Substance: CLOZAPINE
     Indication: Product used for unknown indication
  9. CLOZAPINE [Interacting]
     Active Substance: CLOZAPINE
     Route: 065
  10. CLOZAPINE [Interacting]
     Active Substance: CLOZAPINE
     Dosage: 3 DOSAGE FORM, QD (1 EVERY 1 DAYS)
     Route: 065
  11. CLOZAPINE [Interacting]
     Active Substance: CLOZAPINE
     Route: 065
  12. CLOZAPINE [Interacting]
     Active Substance: CLOZAPINE
     Dosage: 1 DOSAGE FORM, QD (1 EVERY 1 DAYS)
     Route: 065
  13. ESTRADIOL BENZOATE [Interacting]
     Active Substance: ESTRADIOL BENZOATE
     Indication: Product used for unknown indication
     Route: 067
  14. VALPROIC ACID [Interacting]
     Active Substance: VALPROIC ACID
     Indication: Product used for unknown indication
  15. OLANZAPINE [Interacting]
     Active Substance: OLANZAPINE
     Indication: Product used for unknown indication
     Dosage: 1 DOSAGE FORM, QD (1 EVERY 1 DAYS)
     Route: 065
  16. OLANZAPINE [Interacting]
     Active Substance: OLANZAPINE
     Route: 065
  17. OLANZAPINE [Interacting]
     Active Substance: OLANZAPINE
     Route: 065
  18. LEVOTHYROXINE SODIUM [Interacting]
     Active Substance: LEVOTHYROXINE SODIUM
     Indication: Product used for unknown indication
     Route: 065
  19. CHOLECALCIFEROL [Interacting]
     Active Substance: CHOLECALCIFEROL
     Indication: Product used for unknown indication
     Route: 065
  20. CHOLECALCIFEROL [Interacting]
     Active Substance: CHOLECALCIFEROL
     Route: 065
  21. ARIPIPRAZOLE [Interacting]
     Active Substance: ARIPIPRAZOLE
     Indication: Product used for unknown indication
  22. CLOTRIMAZOLE [Interacting]
     Active Substance: CLOTRIMAZOLE
     Indication: Rash
  23. CONJUGATED ESTROGENS [Interacting]
     Active Substance: ESTROGENS, CONJUGATED
     Indication: Product used for unknown indication
  24. CONJUGATED ESTROGENS [Interacting]
     Active Substance: ESTROGENS, CONJUGATED
     Route: 065
  25. FLUMIST QUADRIVALENT [Interacting]
     Active Substance: INFLUENZA A VIRUS A/CALIFORNIA/7/2009 (H1N1) LIVE(ATTENUATED) ANTIGEN\INFLUENZA A VIRUS A/TEXAS/50/2
     Indication: Prophylaxis
  26. FLUMIST QUADRIVALENT [Interacting]
     Active Substance: INFLUENZA A VIRUS A/CALIFORNIA/7/2009 (H1N1) LIVE(ATTENUATED) ANTIGEN\INFLUENZA A VIRUS A/TEXAS/50/2
  27. REXULTI [Interacting]
     Active Substance: BREXPIPRAZOLE
     Indication: Product used for unknown indication
  28. ALUMINUM HYDROXIDE [Interacting]
     Active Substance: ALUMINUM HYDROXIDE
     Indication: Abdominal discomfort
  29. AMLODIPINE MESYLATE [Interacting]
     Active Substance: AMLODIPINE MESYLATE
     Indication: Product used for unknown indication
     Route: 065
  30. PHENYLEPHRINE [Interacting]
     Active Substance: PHENYLEPHRINE
     Indication: Product used for unknown indication
     Route: 065
  31. INFLUENZA VIRUS VACCINE [Interacting]
     Active Substance: INFLUENZA VIRUS VACCINE
     Indication: Antiviral prophylaxis
     Route: 065
  32. INFLUENZA VIRUS VACCINE [Interacting]
     Active Substance: INFLUENZA VIRUS VACCINE
     Indication: Prophylaxis
     Route: 065
  33. VALPROATE SODIUM [Interacting]
     Active Substance: VALPROATE SODIUM
     Indication: Product used for unknown indication
     Route: 065
  34. DIVALPROEX SODIUM [Interacting]
     Active Substance: DIVALPROEX SODIUM
     Indication: Product used for unknown indication
     Dosage: 1 DF, BID
     Route: 065
  35. DIVALPROEX SODIUM [Interacting]
     Active Substance: DIVALPROEX SODIUM
     Dosage: 2 DOSAGE FORM, QD (1 EVERY 1 DAYS)
     Route: 065
  36. DIVALPROEX SODIUM [Interacting]
     Active Substance: DIVALPROEX SODIUM
     Route: 065
  37. DIVALPROEX SODIUM [Interacting]
     Active Substance: DIVALPROEX SODIUM
     Route: 065
  38. ACETAMINOPHEN\PHENYLEPHRINE HYDROCHLORIDE [Interacting]
     Active Substance: ACETAMINOPHEN\PHENYLEPHRINE HYDROCHLORIDE
     Indication: Pain
     Route: 065
  39. VITAMIN D3 [Interacting]
     Active Substance: CHOLECALCIFEROL
     Indication: Product used for unknown indication
     Route: 065
  40. VITAMIN D3 [Interacting]
     Active Substance: CHOLECALCIFEROL
     Route: 065
  41. ESTRADIOL [Interacting]
     Active Substance: ESTRADIOL
     Indication: Product used for unknown indication
     Route: 067
  42. DIVALPROEX SODIUM [Concomitant]
     Active Substance: DIVALPROEX SODIUM
     Indication: Product used for unknown indication
     Route: 065
  43. DIVALPROEX SODIUM [Concomitant]
     Active Substance: DIVALPROEX SODIUM
     Route: 065

REACTIONS (10)
  - Schizoaffective disorder [Not Recovered/Not Resolved]
  - Electrocardiogram QT prolonged [Not Recovered/Not Resolved]
  - Drug interaction [Not Recovered/Not Resolved]
  - Drug level increased [Not Recovered/Not Resolved]
  - Insomnia [Not Recovered/Not Resolved]
  - Abdominal discomfort [Not Recovered/Not Resolved]
  - Pain [Not Recovered/Not Resolved]
  - Pyrexia [Not Recovered/Not Resolved]
  - Sinus rhythm [Not Recovered/Not Resolved]
  - Product use issue [Not Recovered/Not Resolved]
